FAERS Safety Report 25595650 (Version 1)
Quarter: 2025Q3

REPORT INFORMATION
  Report Type: Report from Study
  Country: US (occurrence: US)
  Receive Date: 20250723
  Receipt Date: 20250723
  Transmission Date: 20251021
  Serious: Yes (Other)
  Sender: BAYER HEALTHCARE LLC
  Company Number: US-BAYER-2025A015745

PATIENT
  Age: 81 Year
  Sex: Male
  Weight: 64.853 kg

DRUGS (21)
  1. ADEMPAS [Suspect]
     Active Substance: RIOCIGUAT
     Indication: Pulmonary arterial hypertension
     Dosage: 0.5 MG, TID
     Route: 048
     Dates: start: 20250129
  2. ADEMPAS [Suspect]
     Active Substance: RIOCIGUAT
     Indication: Pulmonary arterial hypertension
     Dosage: 1 MG, TID
     Route: 048
  3. ADEMPAS [Suspect]
     Active Substance: RIOCIGUAT
     Indication: Pulmonary arterial hypertension
     Dosage: 1.5 MG, TID
     Route: 048
  4. ADEMPAS [Suspect]
     Active Substance: RIOCIGUAT
     Indication: Pulmonary arterial hypertension
     Dosage: 2 MG, TID
     Route: 048
  5. ADEMPAS [Suspect]
     Active Substance: RIOCIGUAT
     Indication: Pulmonary arterial hypertension
     Dosage: 2.5 MG, TID
     Route: 048
  6. ADEMPAS [Suspect]
     Active Substance: RIOCIGUAT
     Indication: Pulmonary arterial hypertension
     Dosage: 2.5 MG, TID
     Route: 048
  7. ADEMPAS [Suspect]
     Active Substance: RIOCIGUAT
     Indication: Pulmonary arterial hypertension
     Dosage: 2.5 MG, TID
     Route: 048
  8. ASPIRIN [Suspect]
     Active Substance: ASPIRIN
  9. OPSUMIT [Suspect]
     Active Substance: MACITENTAN
     Dates: start: 202506, end: 20250622
  10. ELIQUIS [Concomitant]
     Active Substance: APIXABAN
  11. DOCUSATE SODIUM [Concomitant]
     Active Substance: DOCUSATE SODIUM
  12. FIBER LAX [Concomitant]
     Active Substance: CALCIUM POLYCARBOPHIL
  13. FLOMAX [Concomitant]
     Active Substance: TAMSULOSIN HYDROCHLORIDE
  14. SENNA S [Concomitant]
     Active Substance: DOCUSATE SODIUM\SENNOSIDES
  15. LASIX [Concomitant]
     Active Substance: FUROSEMIDE
  16. BREZTRI [Concomitant]
     Active Substance: BUDESONIDE\FORMOTEROL\GLYCOPYRROLATE
  17. ALBUTEROL SULFATE [Concomitant]
     Active Substance: ALBUTEROL SULFATE
  18. VITAMIN B12 [Concomitant]
     Active Substance: CYANOCOBALAMIN
  19. OXYGEN [Concomitant]
     Active Substance: OXYGEN
  20. TUMS EX [Concomitant]
     Active Substance: CALCIUM CARBONATE
  21. CLOBETASOL PROPIONATE [Concomitant]
     Active Substance: CLOBETASOL PROPIONATE

REACTIONS (15)
  - Haemoptysis [None]
  - Angina pectoris [Recovered/Resolved]
  - Haemoptysis [None]
  - Peripheral swelling [None]
  - Dyspepsia [None]
  - Oedema peripheral [None]
  - Headache [Recovered/Resolved]
  - Headache [Recovering/Resolving]
  - Gastrooesophageal reflux disease [Recovering/Resolving]
  - Peripheral swelling [Recovering/Resolving]
  - Dyspepsia [None]
  - Oedema peripheral [None]
  - Dyspnoea [None]
  - Peripheral swelling [Recovered/Resolved]
  - Abdominal pain upper [Recovered/Resolved]

NARRATIVE: CASE EVENT DATE: 20250101
